FAERS Safety Report 10237291 (Version 1)
Quarter: 2014Q2

REPORT INFORMATION
  Report Type: Spontaneous
  Country: US (occurrence: US)
  Receive Date: 20140613
  Receipt Date: 20140613
  Transmission Date: 20141212
  Serious: No
  Sender: FDA-Public Use
  Company Number: US-GILEAD-2014-0105177

PATIENT
  Age: 59 Year
  Sex: Female

DRUGS (4)
  1. LETAIRIS [Suspect]
     Indication: PULMONARY ARTERIAL HYPERTENSION
     Dosage: 10 MG, QD
     Route: 065
     Dates: start: 20110429
  2. RIOCIGUAT [Suspect]
     Indication: PULMONARY ARTERIAL HYPERTENSION
     Dosage: 0.5 MG, TID
     Route: 065
     Dates: start: 20140513
  3. VERAPAMIL [Concomitant]
  4. SIMVASTATIN [Concomitant]

REACTIONS (1)
  - Abdominal pain upper [Unknown]
